FAERS Safety Report 7529290-3 (Version None)
Quarter: 2011Q2

REPORT INFORMATION
  Report Type: 
  Country: None (occurrence: None)
  Receive Date: 20110607
  Receipt Date: 20110530
  Transmission Date: 20111010
  Serious: Yes (Other)
  Sender: FDA-Public Use
  Company Number: JP-ROCHE-775591

PATIENT
  Sex: Female

DRUGS (2)
  1. TAXOTERE [Suspect]
     Indication: BREAST CANCER
     Dosage: ROUTE: INTRAVENOUS DRIP, DRUG REPORTED: TAXOTERE(DOCETAXEL HYDRATE)
     Route: 041
  2. HERCEPTIN [Suspect]
     Indication: BREAST CANCER
     Dosage: ROUTE: INTRAVENOUS DRIP
     Route: 041

REACTIONS (1)
  - TONIC CONVULSION [None]
